FAERS Safety Report 6461717-0 (Version None)
Quarter: 2009Q4

REPORT INFORMATION
  Report Type: 
  Country: None (occurrence: None)
  Receive Date: 20091130
  Receipt Date: 20091120
  Transmission Date: 20100525
  Serious: Yes (Hospitalization)
  Sender: FDA-Public Use
  Company Number: PL-BRISTOL-MYERS SQUIBB COMPANY-14003057

PATIENT
  Age: 83 Year
  Sex: Male
  Weight: 78 kg

DRUGS (4)
  1. IRBESARTAN [Suspect]
     Indication: HYPERTENSION
     Dates: start: 20041104
  2. ACENOCOUMAROL [Suspect]
     Indication: PROPHYLAXIS
     Dates: start: 20041104
  3. DEXTRAN INJ [Concomitant]
  4. NOOTROPIL [Concomitant]

REACTIONS (2)
  - HYPOTONIA [None]
  - LOSS OF CONSCIOUSNESS [None]
